FAERS Safety Report 5383460-1 (Version None)
Quarter: 2007Q3

REPORT INFORMATION
  Report Type: 
  Country: None (occurrence: None)
  Receive Date: 20070706
  Receipt Date: 20070620
  Transmission Date: 20080115
  Serious: Yes (Hospitalization, Other)
  Sender: FDA-Public Use
  Company Number: 2007US001169

PATIENT
  Age: 51 Year
  Sex: Female

DRUGS (12)
  1. AMBISOME [Suspect]
     Indication: SYSTEMIC MYCOSIS
     Dosage: SEE IMAGE
     Route: 041
     Dates: start: 20070322, end: 20070328
  2. AMBISOME [Suspect]
     Indication: SYSTEMIC MYCOSIS
     Dosage: SEE IMAGE
     Route: 041
     Dates: start: 20070329, end: 20070502
  3. AMBISOME [Suspect]
     Indication: SYSTEMIC MYCOSIS
     Dosage: SEE IMAGE
     Route: 041
     Dates: start: 20070503, end: 20070508
  4. ITRACONAZOLE [Suspect]
     Indication: SYSTEMIC MYCOSIS
  5. GASTER [Concomitant]
  6. DOGMATYL [Concomitant]
  7. SULFAMETHOXAZOLE + TRIMETHOPRIM [Concomitant]
  8. MINOCYCLINE HCL [Concomitant]
  9. HABEKACIN (ARBEKACIN) [Concomitant]
  10. CLARITHROMYCIN [Concomitant]
  11. RIZE (CLOTIAZEPAM) [Concomitant]
  12. RED BLOOD CELLS [Concomitant]

REACTIONS (1)
  - PERICARDITIS INFECTIVE [None]
